FAERS Safety Report 17975966 (Version 1)
Quarter: 2020Q3

REPORT INFORMATION
  Report Type: Spontaneous
  Country: FR (occurrence: FR)
  Receive Date: 20200702
  Receipt Date: 20200702
  Transmission Date: 20201103
  Serious: Yes (Other)
  Sender: FDA-Public Use
  Company Number: NVSC2020FR184956

PATIENT
  Age: 20 Year
  Sex: Male

DRUGS (2)
  1. DICLOFENAC SODIUM. [Suspect]
     Active Substance: DICLOFENAC SODIUM
     Indication: BACK PAIN
     Dosage: PLASTER DEVICE
     Route: 065
     Dates: start: 20200601
  2. VOLTARENPLAST 1% [Suspect]
     Active Substance: DICLOFENAC SODIUM
     Indication: BACK PAIN
     Dosage: 1 DF, QD
     Route: 003
     Dates: start: 20200601, end: 20200601

REACTIONS (1)
  - Application site burn [Recovering/Resolving]

NARRATIVE: CASE EVENT DATE: 20200601
